FAERS Safety Report 4472844-1 (Version None)
Quarter: 2004Q4

REPORT INFORMATION
  Report Type: 
  Country: None (occurrence: None)
  Receive Date: 20041012
  Receipt Date: 20041012
  Transmission Date: 20050328
  Serious: Yes (Other)
  Sender: FDA-Public Use
  Company Number: None

PATIENT
  Age: 79 Year
  Sex: Male

DRUGS (2)
  1. MEPERIDINE 37.5 MG IV [Suspect]
     Dosage: 37.5 MG IV
     Route: 042
  2. MIDAZOLAM 4MG IV [Suspect]
     Dosage: 4MG IV
     Route: 042

REACTIONS (5)
  - BRADYCARDIA [None]
  - HYPOTENSION [None]
  - OXYGEN SATURATION DECREASED [None]
  - RESPIRATORY ARREST [None]
  - STUPOR [None]
